FAERS Safety Report 6671799-9 (Version None)
Quarter: 2010Q2

REPORT INFORMATION
  Report Type: 
  Country: None (occurrence: None)
  Receive Date: 20100407
  Receipt Date: 20100402
  Transmission Date: 20101027
  Serious: Yes (Hospitalization, Other)
  Sender: FDA-Public Use
  Company Number: US-ROCHE-610816

PATIENT
  Sex: Female
  Weight: 65.5 kg

DRUGS (18)
  1. BEVACIZUMAB [Suspect]
     Dosage: DOSE REPORTED AS 15 MG/KG, STUDY DRUG HELD.
     Route: 042
     Dates: start: 20081121, end: 20090212
  2. TRASTUZUMAB [Suspect]
     Dosage: DOSE: 6 MG/KG, DOSE FORM REPORTED AS VIALS, DATE OF LAST DOSE PRIOR TO SAE: 5 MAR 2009
     Route: 042
     Dates: start: 20081120
  3. DOCETAXEL [Suspect]
     Dosage: DOSE: 60 MG/ME2; DOSE FORM: VIALS; LAST DAOSE PRIOR TO SAE: 5 MAR 2009.
     Route: 042
     Dates: start: 20081120
  4. CARBOPLATIN [Suspect]
     Dosage: DOSE: 5 AUC; DOSE FORM: VIALS; DATE OF LAST DOSE PRIOR TO SAE: 5 MAR 2009.
     Route: 042
     Dates: start: 20081121
  5. COUMADIN [Suspect]
     Indication: DRUG USE FOR UNKNOWN INDICATION
     Route: 065
     Dates: start: 20090123
  6. TYLENOL PM [Concomitant]
  7. ROBITUSSIN [Concomitant]
     Dosage: DRUG REPORTED AS ROBITUSSIN (COUGH GEL).
     Route: 048
  8. PROMETHAZINE VC WITH CODEINE [Concomitant]
     Dosage: DOSE REPORTED AS I TSP. DRUG NAME REPORTED AS PROMETHAZINE-CODEINE SYRUP.
  9. COMPAZINE [Concomitant]
  10. ATIVAN [Concomitant]
     Dosage: IN CASE 609918: DOSE REPORTED AS 4 MG.
  11. IMODIUM [Concomitant]
     Dates: end: 20070301
  12. IMODIUM [Concomitant]
  13. ONDANSETRON [Concomitant]
     Dosage: DRUG NAME REPORTED AS ONDANSETRON PO.
     Route: 048
  14. LOPERAMIDE [Concomitant]
     Dates: start: 20081130
  15. VENTOLIN [Concomitant]
     Route: 048
  16. VICODIN [Concomitant]
  17. CHEMOTHERAPY [Concomitant]
     Dosage: DRUG REPORTED: TCH-B (CHEMOTHERAPY).
     Dates: start: 20081120
  18. DECADRON [Concomitant]

REACTIONS (4)
  - NECK PAIN [None]
  - OEDEMA PERIPHERAL [None]
  - THROMBOSIS [None]
  - WOUND DEHISCENCE [None]
